FAERS Safety Report 6895785-9 (Version None)
Quarter: 2010Q3

REPORT INFORMATION
  Report Type: 
  Country: None (occurrence: None)
  Receive Date: 20100802
  Receipt Date: 20100721
  Transmission Date: 20110219
  Serious: Yes (Other)
  Sender: FDA-Public Use
  Company Number: JP-PFIZER INC-2010087165

PATIENT
  Age: 79 Year
  Sex: Female

DRUGS (11)
  1. CELECOX [Suspect]
     Dosage: 100 MG, 2X/DAY
     Route: 048
     Dates: start: 20100612, end: 20100614
  2. ZITHROMAC [Suspect]
     Dosage: 250 MG, 2X/DAY
     Route: 048
     Dates: start: 20100604, end: 20100606
  3. WARFARIN [Suspect]
     Dosage: 3.5 MG, UID/1X/DAY
     Route: 048
     Dates: start: 20100320
  4. LENDORMIN [Concomitant]
     Dosage: UNK
     Route: 048
  5. VALSARTAN [Concomitant]
     Dosage: 160 MG, DAILY
     Route: 048
  6. AMLODIPINE BESYLATE [Concomitant]
     Dosage: 5 MG, DAILY
     Route: 048
  7. FLUITRAN [Concomitant]
     Dosage: UNK
     Route: 048
  8. ROCALTROL [Concomitant]
     Dosage: UNK
     Route: 048
  9. COMELIAN [Concomitant]
     Dosage: UNK
     Route: 048
  10. PREDONINE [Concomitant]
     Dosage: UNK
     Route: 048
     Dates: start: 20100612, end: 20100614
  11. GLAKAY [Concomitant]
     Dosage: UNK
     Route: 048
     Dates: start: 20100614

REACTIONS (1)
  - INTERNATIONAL NORMALISED RATIO INCREASED [None]
